FAERS Safety Report 8427347-6 (Version None)
Quarter: 2012Q2

REPORT INFORMATION
  Report Type: 
  Country: None (occurrence: None)
  Receive Date: 20120323
  Receipt Date: 20110210
  Transmission Date: 20120825
  Serious: Yes (Hospitalization, Other)
  Sender: FDA-Public Use
  Company Number: 163-21880-11021768

PATIENT
  Age: 79 Year
  Sex: Male

DRUGS (11)
  1. REVLIMID [Suspect]
     Indication: MULTIPLE MYELOMA
     Dosage: SEE IMAGE
     Route: 048
     Dates: start: 20090501
  2. REVLIMID [Suspect]
     Indication: MULTIPLE MYELOMA
     Dosage: SEE IMAGE
     Route: 048
     Dates: start: 20090301
  3. REVLIMID [Suspect]
     Indication: MULTIPLE MYELOMA
     Dosage: SEE IMAGE
     Route: 048
     Dates: start: 20100701, end: 20101101
  4. HYDROCODONE/APAP (PROCET /USA) [Concomitant]
  5. LISINOPRIL [Concomitant]
  6. DIAZEPAM [Concomitant]
  7. TERAZOSIN HCL [Concomitant]
  8. DOCUSATE (DOCUSATE) [Concomitant]
  9. SPIRIVA [Concomitant]
  10. OMEPRAZOLE [Concomitant]
  11. MORPHINE [Concomitant]

REACTIONS (7)
  - CELLULITIS [None]
  - BRONCHITIS [None]
  - DIZZINESS [None]
  - PANCYTOPENIA [None]
  - NEUROPATHY PERIPHERAL [None]
  - PNEUMONIA [None]
  - HIP FRACTURE [None]
